FAERS Safety Report 8335936-2 (Version None)
Quarter: 2012Q2

REPORT INFORMATION
  Report Type: 
  Country: None (occurrence: None)
  Receive Date: 20120504
  Receipt Date: 20101209
  Transmission Date: 20120825
  Serious: Yes (Death, Hospitalization)
  Sender: FDA-Public Use
  Company Number: JP-BAYER-200913092BYL

PATIENT
  Age: 82 Year
  Sex: Female

DRUGS (10)
  1. OXYGEN [Concomitant]
     Dosage: 1 L (DAILY DOSE), , RESPIRATORY
     Route: 055
     Dates: start: 20090726
  2. GANATON [Concomitant]
     Dosage: 150 MG (DAILY DOSE), , ORAL
     Route: 048
     Dates: start: 20090711, end: 20090726
  3. MOBIC [Concomitant]
     Dosage: 5 MG (DAILY DOSE), , ORAL
     Route: 048
  4. CODEINE PHOSPHATE [Concomitant]
     Dosage: 3 DF (DAILY DOSE), , ORAL
     Route: 048
  5. ADALAT CC [Concomitant]
     Dosage: 20 MG (DAILY DOSE), , ORAL
     Route: 048
  6. PROTECADIN [Concomitant]
     Dosage: 10 MG (DAILY DOSE), , ORAL
     Route: 048
  7. DIOVAN [Concomitant]
     Dosage: 40 MG (DAILY DOSE), , ORAL
     Route: 048
  8. SORAFENIB [Suspect]
     Indication: RENAL CELL CARCINOMA
     Dosage: 400 MG, BID
     Route: 048
     Dates: start: 20090711, end: 20090724
  9. MERISLON [Concomitant]
     Dosage: 18 MG (DAILY DOSE), , ORAL
     Route: 048
  10. OXYGEN [Concomitant]
     Dosage: 3 L (DAILY DOSE), , RESPIRATORY
     Route: 055
     Dates: start: 20090728

REACTIONS (4)
  - PYREXIA [None]
  - DERMATITIS [None]
  - RESPIRATORY FAILURE [None]
  - STOMATITIS [None]
